FAERS Safety Report 7523811-2 (Version None)
Quarter: 2011Q2

REPORT INFORMATION
  Report Type: 
  Country: None (occurrence: None)
  Receive Date: 20110603
  Receipt Date: 20110526
  Transmission Date: 20111010
  Serious: No
  Sender: FDA-Public Use
  Company Number: JP-ABBOTT-11P-087-0722197-00

PATIENT
  Sex: Male
  Weight: 70 kg

DRUGS (9)
  1. ROCEPHIN [Concomitant]
     Indication: BRONCHITIS
     Dosage: 1 G, SID
     Route: 042
     Dates: start: 20110425, end: 20110425
  2. HUSCODE SYRUP [Suspect]
     Indication: COUGH
  3. RIMATIL [Concomitant]
     Indication: RHEUMATOID ARTHRITIS
     Route: 048
  4. PL COMBINATION GRANULE [Suspect]
     Indication: BRONCHITIS
     Route: 048
     Dates: start: 20110425, end: 20110425
  5. LYRICA [Concomitant]
     Indication: RHEUMATOID ARTHRITIS
     Route: 048
     Dates: start: 20110301
  6. CLARITHROMYCIN [Suspect]
     Indication: ANTIBIOTIC THERAPY
  7. HUSCODE SYRUP [Suspect]
     Indication: BRONCHITIS
     Route: 048
     Dates: start: 20110425, end: 20110425
  8. CLARITHROMYCIN [Suspect]
     Indication: BRONCHITIS
     Route: 048
     Dates: start: 20110425, end: 20110425
  9. PL COMBINATION GRANULE [Suspect]
     Indication: NASOPHARYNGITIS

REACTIONS (3)
  - HYPERSENSITIVITY [None]
  - FEELING ABNORMAL [None]
  - FACE OEDEMA [None]
